FAERS Safety Report 16918450 (Version 1)
Quarter: 2019Q4

REPORT INFORMATION
  Report Type: Spontaneous
  Country: GB (occurrence: GB)
  Receive Date: 20191015
  Receipt Date: 20191015
  Transmission Date: 20200122
  Serious: Yes (Other)
  Sender: FDA-Public Use
  Company Number: GB-JNJFOC-20191016381

PATIENT
  Age: 74 Year
  Sex: Female
  Weight: 93 kg

DRUGS (9)
  1. CLARITIN [Concomitant]
     Active Substance: LORATADINE
     Dosage: 1 DF, QD
  2. COD-LIVER OIL [Concomitant]
     Active Substance: COD LIVER OIL
     Dosage: 1000 MG, QD
  3. VITEYES AREDS 2 [Concomitant]
     Active Substance: MINERALS\VITAMINS
     Dosage: 2 DF, QD
  4. CANDESARTAN. [Concomitant]
     Active Substance: CANDESARTAN
     Dosage: 8 MG, QD
  5. GLUCOSAMINE SULFATE [Concomitant]
     Active Substance: GLUCOSAMINE SULFATE
     Dosage: 1000 MG, QD
  6. RIVAROXABAN [Suspect]
     Active Substance: RIVAROXABAN
     Indication: PULMONARY EMBOLISM
     Dosage: 20 MG, QD
     Route: 048
     Dates: start: 20170726
  7. SOMATULINE [Concomitant]
     Active Substance: LANREOTIDE ACETATE
     Indication: ACROMEGALY
     Dosage: 1 DF, 6ID
  8. OENOTHERA BIENNIS [Concomitant]
     Active Substance: OENOTHERA BIENNIS
     Dosage: 1000 MG, QD
  9. CEFALEXIN [Concomitant]
     Active Substance: CEPHALEXIN
     Dosage: 125 MG, QD

REACTIONS (2)
  - Pruritus [Not Recovered/Not Resolved]
  - Skin burning sensation [Not Recovered/Not Resolved]

NARRATIVE: CASE EVENT DATE: 20180101
